FAERS Safety Report 9319511 (Version 1)
Quarter: 2012Q4

REPORT INFORMATION
  Report Type: Spontaneous
  Country: US (occurrence: None)
  Receive Date: 20121214
  Receipt Date: 20121214
  Transmission Date: 20130627
  Serious: Yes (Other)
  Sender: FDA-Public Use
  Company Number: 2012-JP-0026 / TOR2012-0009

PATIENT
  Sex: Female

DRUGS (3)
  1. FARESTON [Suspect]
     Indication: BREAST CANCER
  2. ACETAMINOPHEN (ACETAMINOPHEN) [Concomitant]
  3. OPSO (MORPHINE LINCTUS) [Concomitant]

REACTIONS (3)
  - Blood disorder [None]
  - White blood cell count decreased [None]
  - Platelet count decreased [None]
